FAERS Safety Report 12891688 (Version 1)
Quarter: 2016Q4

REPORT INFORMATION
  Report Type: Spontaneous
  Country: US (occurrence: US)
  Receive Date: 20161028
  Receipt Date: 20161028
  Transmission Date: 20170207
  Serious: No
  Sender: FDA-Public Use
  Company Number: US-TAIHO ONCOLOGY INC-EU-2016-02164

PATIENT
  Age: 62 Year
  Sex: Male

DRUGS (8)
  1. AMBIEN [Concomitant]
     Active Substance: ZOLPIDEM TARTRATE
     Dosage: NI
  2. ZOFRAN [Concomitant]
     Active Substance: ONDANSETRON HYDROCHLORIDE
     Dosage: NI
  3. MS CONTIN [Concomitant]
     Active Substance: MORPHINE SULFATE
     Dosage: NI
  4. LISINOPRIL. [Concomitant]
     Active Substance: LISINOPRIL
     Dosage: NI
  5. HYDROCODONE [Concomitant]
     Active Substance: HYDROCODONE
     Dosage: NI
  6. OMEPRAZOLE. [Concomitant]
     Active Substance: OMEPRAZOLE
     Dosage: NI
  7. LONSURF [Suspect]
     Active Substance: TIPIRACIL HYDROCHLORIDE\TRIFLURIDINE
     Indication: COLON CANCER
     Route: 048
     Dates: start: 20160419
  8. LACTULOSE. [Concomitant]
     Active Substance: LACTULOSE
     Dosage: NI

REACTIONS (5)
  - Abdominal pain [Not Recovered/Not Resolved]
  - Alopecia [Not Recovered/Not Resolved]
  - Dysgeusia [Not Recovered/Not Resolved]
  - Nausea [Not Recovered/Not Resolved]
  - Decreased appetite [Not Recovered/Not Resolved]

NARRATIVE: CASE EVENT DATE: 201608
